FAERS Safety Report 14852801 (Version 1)
Quarter: 2018Q2

REPORT INFORMATION
  Report Type: Spontaneous
  Country: US (occurrence: US)
  Receive Date: 20180419
  Receipt Date: 20180419
  Transmission Date: 20180711
  Serious: Yes (Hospitalization)
  Sender: FDA-Public Use
  Company Number: None

PATIENT
  Age: 36 Year
  Sex: Female

DRUGS (1)
  1. XELJANZ [Suspect]
     Active Substance: TOFACITINIB CITRATE
     Indication: RHEUMATOID ARTHRITIS
     Route: 048
     Dates: start: 20180419

REACTIONS (6)
  - Upper respiratory tract infection [None]
  - Fungal infection [None]
  - Herpes zoster [None]
  - Ear infection [None]
  - Fatigue [None]
  - Cellulitis [None]

NARRATIVE: CASE EVENT DATE: 201711
